FAERS Safety Report 7110895-9 (Version None)
Quarter: 2010Q4

REPORT INFORMATION
  Report Type: 
  Country: None (occurrence: None)
  Receive Date: 20101112
  Receipt Date: 20101027
  Transmission Date: 20110411
  Serious: Yes (Hospitalization, Disabling)
  Sender: FDA-Public Use
  Company Number: 1-17245659

PATIENT
  Age: 56 Year
  Sex: Female
  Weight: 76.2043 kg

DRUGS (16)
  1. QUALAQUIN [Suspect]
     Indication: MUSCLE SPASMS
     Dosage: 324 MG, 2X DAILY, OCCASIONALLY, ORAL
     Route: 048
     Dates: start: 20021004
  2. QUININE SULFATE [Suspect]
     Indication: MUSCLE SPASMS
     Dosage: 325 MG, 2X DAILY, OCCASIONALLY, ORAL
     Route: 048
     Dates: start: 20051223
  3. DIOVAN (LOSARTAN) [Concomitant]
  4. CRESTOR [Concomitant]
  5. PROTONIX [Concomitant]
  6. AZITHROMYCIN [Concomitant]
  7. BENZONATATE [Concomitant]
  8. METHYLPREDNISOLONE [Concomitant]
  9. ANDEHIST [Concomitant]
  10. LEVAQUIN [Concomitant]
  11. PREDNISONE [Concomitant]
  12. NORVASC [Concomitant]
  13. ^BLOOD PRESSURE DRUG^ [Concomitant]
  14. MULTI-VITAMIN [Concomitant]
  15. CALCIUM [Concomitant]
  16. POTASSIUM [Concomitant]

REACTIONS (15)
  - COAGULOPATHY [None]
  - DEEP VEIN THROMBOSIS [None]
  - DRUG HYPERSENSITIVITY [None]
  - EVANS SYNDROME [None]
  - GASTROINTESTINAL INFLAMMATION [None]
  - HAEMORRHAGE [None]
  - IDIOPATHIC THROMBOCYTOPENIC PURPURA [None]
  - INFLUENZA [None]
  - MOUTH HAEMORRHAGE [None]
  - NEPHROPATHY [None]
  - PAIN [None]
  - PLATELET COUNT INCREASED [None]
  - RENAL FAILURE [None]
  - THROMBOTIC THROMBOCYTOPENIC PURPURA [None]
  - UNEVALUABLE EVENT [None]
